FAERS Safety Report 5020295-3 (Version None)
Quarter: 2006Q2

REPORT INFORMATION
  Report Type: 
  Country: None (occurrence: None)
  Receive Date: 20060602
  Receipt Date: 20060515
  Transmission Date: 20061013
  Serious: Yes (Other)
  Sender: FDA-Public Use
  Company Number: IE200603004209

PATIENT
  Age: 53 Year
  Sex: Female
  Weight: 61.9 kg

DRUGS (4)
  1. FORTEO [Suspect]
     Indication: OSTEOPOROTIC FRACTURE
     Dosage: 20 UG, DAILY (1/D), UNK
     Dates: start: 20060101, end: 20060310
  2. FORTEO [Concomitant]
  3. OMEGA 3 (FISH OIL) [Concomitant]
  4. IDEOS         (CALCIUM CARBONATE, COLECALCIFEROL) [Concomitant]

REACTIONS (1)
  - URTICARIA [None]
